FAERS Safety Report 9850040 (Version 1)
Quarter: 2013Q4

REPORT INFORMATION
  Report Type: Spontaneous
  Country: US (occurrence: None)
  Receive Date: 20131226
  Receipt Date: 20131226
  Transmission Date: 20140711
  Serious: Yes (Disabling)
  Sender: FDA-Public Use
  Company Number: PHEH2013US015509

PATIENT
  Sex: Female

DRUGS (1)
  1. SIGNIFOR (PASIREOTIDE) UNKNOWN [Suspect]
     Dosage: , SUBCUTANEOUS
     Route: 058

REACTIONS (1)
  - Blood glucose increased [None]
